FAERS Safety Report 17011997 (Version 1)
Quarter: 2019Q4

REPORT INFORMATION
  Report Type: Spontaneous
  Country: IT (occurrence: IT)
  Receive Date: 20191108
  Receipt Date: 20191108
  Transmission Date: 20200122
  Serious: Yes (Hospitalization)
  Sender: FDA-Public Use
  Company Number: IT-ASTRAZENECA-2019SF54413

PATIENT
  Age: 70 Year
  Sex: Female
  Weight: 77 kg

DRUGS (1)
  1. LYNPARZA [Suspect]
     Active Substance: OLAPARIB
     Indication: ADENOCARCINOMA OF COLON
     Route: 048
     Dates: start: 20190625, end: 20190714

REACTIONS (3)
  - Interstitial lung disease [Recovered/Resolved]
  - Pancytopenia [Recovered/Resolved]
  - Pneumocystis jirovecii pneumonia [Recovered/Resolved]

NARRATIVE: CASE EVENT DATE: 20190715
